FAERS Safety Report 15859397 (Version 1)
Quarter: 2019Q1

REPORT INFORMATION
  Report Type: Spontaneous
  Country: US (occurrence: US)
  Receive Date: 20190123
  Receipt Date: 20190123
  Transmission Date: 20190417
  Serious: No
  Sender: FDA-Public Use
  Company Number: US-BAUSCH-BL-2019-001776

PATIENT
  Age: 66 Year
  Sex: Female

DRUGS (1)
  1. LUMIFY [Suspect]
     Active Substance: BRIMONIDINE TARTRATE
     Indication: ERYTHEMA
     Dosage: 1 DROP IN EACH EYE
     Route: 047
     Dates: start: 201901, end: 20190112

REACTIONS (4)
  - Photopsia [Not Recovered/Not Resolved]
  - Underdose [Recovered/Resolved]
  - Vitreous floaters [Not Recovered/Not Resolved]
  - Rash [Not Recovered/Not Resolved]

NARRATIVE: CASE EVENT DATE: 201901
